FAERS Safety Report 5941160-0 (Version None)
Quarter: 2008Q4

REPORT INFORMATION
  Report Type: 
  Country: None (occurrence: None)
  Receive Date: 20081104
  Receipt Date: 20081027
  Transmission Date: 20090506
  Serious: Yes (Death)
  Sender: FDA-Public Use
  Company Number: US-GILEAD-2008-0018726

PATIENT
  Sex: Male
  Weight: 99.88 kg

DRUGS (11)
  1. LETAIRIS [Suspect]
     Indication: PULMONARY ARTERIAL HYPERTENSION
     Route: 048
     Dates: start: 20070914, end: 20081024
  2. FERATAB [Concomitant]
  3. LASIX [Concomitant]
  4. CLARINEX [Concomitant]
  5. METOPROLOL TARTRATE [Concomitant]
  6. PROCHLORPERAZINE [Concomitant]
  7. GLIPIZIDE [Concomitant]
  8. ALPRAZOLAM [Concomitant]
  9. SPIRONOLACTONE [Concomitant]
  10. COMBIVENT [Concomitant]
  11. ACIPHEX [Concomitant]

REACTIONS (1)
  - DEATH [None]
